FAERS Safety Report 6110406-0 (Version None)
Quarter: 2009Q1

REPORT INFORMATION
  Report Type: 
  Country: None (occurrence: None)
  Receive Date: 20090310
  Receipt Date: 20090121
  Transmission Date: 20090719
  Serious: Yes (Hospitalization)
  Sender: FDA-Public Use
  Company Number: AU-PFIZER INC-2007081801

PATIENT

DRUGS (13)
  1. SUNITINIB MALATE [Suspect]
     Indication: GASTROINTESTINAL STROMAL TUMOUR
     Dosage: CYCLIC: 4 WEEKS ON AND 2 WEEKS OFF
     Route: 048
     Dates: start: 20060304, end: 20060627
  2. SUNITINIB MALATE [Suspect]
     Dosage: CYCLIC: 4 WEEKS ON AND 2 WEEKS OFF
     Route: 048
     Dates: start: 20060711
  3. ENALAPRIL MALEATE [Concomitant]
     Route: 048
     Dates: start: 20070505
  4. PARIET [Concomitant]
     Route: 048
     Dates: start: 20060406
  5. CITRACAL [Concomitant]
     Route: 048
     Dates: start: 20030601
  6. COLOXYL WITH SENNA [Concomitant]
     Route: 048
     Dates: start: 20060923
  7. METOCLOPRAMIDE HYDROCHLORIDE [Concomitant]
     Route: 048
     Dates: start: 20060322
  8. ENDONE [Concomitant]
     Route: 048
     Dates: start: 20060311
  9. OSTELIN [Concomitant]
     Route: 048
     Dates: start: 20030601
  10. SYMBICORT [Concomitant]
     Indication: OBSTRUCTIVE AIRWAYS DISORDER
     Route: 055
     Dates: start: 20040801
  11. PARACETAMOL [Concomitant]
     Route: 048
     Dates: start: 20020601
  12. CEFACLOR [Concomitant]
     Indication: LOWER RESPIRATORY TRACT INFECTION
     Route: 048
     Dates: start: 20070924
  13. BIAXSIG [Concomitant]
     Indication: LOWER RESPIRATORY TRACT INFECTION
     Route: 048
     Dates: start: 20070917, end: 20070924

REACTIONS (1)
  - SYNCOPE [None]
